FAERS Safety Report 5146057-4 (Version None)
Quarter: 2006Q4

REPORT INFORMATION
  Report Type: 
  Country: None (occurrence: None)
  Receive Date: 20061108
  Receipt Date: 20061024
  Transmission Date: 20070319
  Serious: Yes (Hospitalization)
  Sender: FDA-Public Use
  Company Number: AU-GLAXOSMITHKLINE-B0444100A

PATIENT
  Age: 45 Year
  Sex: Female
  Weight: 126 kg

DRUGS (7)
  1. ROSIGLITAZONE [Suspect]
     Route: 048
     Dates: start: 20021107
  2. DIAFORMIN [Concomitant]
     Dosage: 2500MG PER DAY
     Route: 048
     Dates: start: 20020322
  3. NAPROSYN [Concomitant]
     Indication: PLANTAR FASCIITIS
     Dosage: 500MG PER DAY
     Route: 048
     Dates: start: 19970101
  4. COVERSYL PLUS [Concomitant]
     Indication: HYPERTENSION
     Route: 048
     Dates: start: 20010101
  5. ZYLOPRIM [Concomitant]
     Dosage: 100MG TWICE PER DAY
     Route: 048
     Dates: start: 19970101
  6. ACETAMINOPHEN W/ CODEINE [Concomitant]
     Route: 048
     Dates: start: 19950101
  7. DERALIN [Concomitant]
     Indication: MIGRAINE
     Dosage: 80MG PER DAY
     Route: 048
     Dates: start: 20051115

REACTIONS (8)
  - CARDIAC FAILURE CONGESTIVE [None]
  - CELLULITIS [None]
  - DYSPNOEA EXERTIONAL [None]
  - HYPOXIA [None]
  - LOBAR PNEUMONIA [None]
  - OEDEMA PERIPHERAL [None]
  - TACHYPNOEA [None]
  - WEIGHT DECREASED [None]
